FAERS Safety Report 24537909 (Version 2)
Quarter: 2025Q1

REPORT INFORMATION
  Report Type: Spontaneous
  Country: US (occurrence: US)
  Receive Date: 20241023
  Receipt Date: 20250129
  Transmission Date: 20250409
  Serious: Yes (Other)
  Sender: GLENMARK
  Company Number: US-GLENMARK PHARMACEUTICALS-2024GMK094146

PATIENT

DRUGS (2)
  1. TOPIRAMATE [Suspect]
     Active Substance: TOPIRAMATE
     Indication: Seizure
     Dosage: BID (8 CAPSULES BY MOUTH, 2 TIMES A DAY)
     Route: 048
  2. TOPIRAMATE [Concomitant]
     Active Substance: TOPIRAMATE
     Indication: Seizure
     Dosage: BID (8 TABLETS, 2 TIMES A DAY)
     Route: 065

REACTIONS (4)
  - Seizure [Unknown]
  - Malaise [Unknown]
  - Product packaging quantity issue [Unknown]
  - Product physical issue [Unknown]
